FAERS Safety Report 6327724-3 (Version None)
Quarter: 2009Q3

REPORT INFORMATION
  Report Type: 
  Country: None (occurrence: None)
  Receive Date: 20090824
  Receipt Date: 20090814
  Transmission Date: 20100115
  Serious: Yes (Disabling, Other)
  Sender: FDA-Public Use
  Company Number: 09US003217

PATIENT
  Age: 67 Year
  Sex: Male
  Weight: 117.9 kg

DRUGS (17)
  1. OXYMETAZOLINE HYDROCHLORIDE 0.05% 388(OXYMETAZOLINE HYDROCHLORIDE) NAS [Suspect]
     Indication: NASAL MUCOSAL DISORDER
     Dosage: 2 SPRAYS EACH NOSTRIL Q 12 HOURS, NASAL
     Route: 045
     Dates: start: 20080214
  2. KLOR-CON [Concomitant]
  3. ZOCOR [Concomitant]
  4. AXID AR (NIZATIDINE) [Concomitant]
  5. LOPID [Concomitant]
  6. ALLOPURINOL [Concomitant]
  7. LASIX [Concomitant]
  8. LEVOTHYROXINE SODIUM [Concomitant]
  9. DIOVAN [Concomitant]
  10. ZETIA [Concomitant]
  11. UROXATRAL [Concomitant]
  12. HUMALOG [Concomitant]
  13. LANTUS [Concomitant]
  14. COMBIGAN (BRIMONIDINE TARTRATE, TIMOLOL MALEATE) [Concomitant]
  15. LUMIGAN [Concomitant]
  16. AZOPT [Concomitant]
  17. CHEMOTHERAPEUTICS NOS [Concomitant]

REACTIONS (6)
  - BLINDNESS [None]
  - CONDITION AGGRAVATED [None]
  - DIABETIC RETINOPATHY [None]
  - EYE DISORDER [None]
  - GLAUCOMA [None]
  - INTENTIONAL DRUG MISUSE [None]
